FAERS Safety Report 21167404 (Version 1)
Quarter: 2022Q3

REPORT INFORMATION
  Report Type: Spontaneous
  Country: US (occurrence: None)
  Receive Date: 20220803
  Receipt Date: 20220803
  Transmission Date: 20221027
  Serious: Yes (Other)
  Sender: FDA-Public Use
  Company Number: None

PATIENT
  Age: 44 Year
  Sex: Female
  Weight: 60.75 kg

DRUGS (5)
  1. CIPROFLOXACIN HYDROCHLORIDE [Suspect]
     Active Substance: CIPROFLOXACIN HYDROCHLORIDE
     Indication: Kidney infection
     Dosage: OTHER QUANTITY : 1 CAPSULE(S);?FREQUENCY : TWICE A DAY;?
     Route: 048
     Dates: start: 20220801, end: 20220802
  2. Wellbutrin 300 mg [Concomitant]
  3. Wellbutrin 150 mg [Concomitant]
  4. Zoloft 25 mg taken from ovulation to end of menstrual cycle [Concomitant]
  5. Motrin 200 mg x3 prn [Concomitant]

REACTIONS (10)
  - Depression [None]
  - Tearfulness [None]
  - Feeling of despair [None]
  - Derealisation [None]
  - Disturbance in attention [None]
  - Nausea [None]
  - Fatigue [None]
  - Thinking abnormal [None]
  - Aphasia [None]
  - Memory impairment [None]

NARRATIVE: CASE EVENT DATE: 20220802
